FAERS Safety Report 5890542-4 (Version None)
Quarter: 2008Q3

REPORT INFORMATION
  Report Type: 
  Country: None (occurrence: None)
  Receive Date: 20080922
  Receipt Date: 20080917
  Transmission Date: 20090109
  Serious: Yes (Other)
  Sender: FDA-Public Use
  Company Number: JP-BRISTOL-MYERS SQUIBB COMPANY-14340921

PATIENT
  Age: 46 Year
  Sex: Male

DRUGS (9)
  1. MAXIPIME [Suspect]
     Route: 041
  2. ENDOXAN [Concomitant]
     Route: 065
  3. DOXORUBICIN HCL [Concomitant]
     Route: 042
  4. ONCOVIN [Concomitant]
     Route: 042
  5. PREDNISOLONE [Concomitant]
     Route: 065
  6. CYLOCIDE [Concomitant]
     Route: 042
     Dates: start: 20080301
  7. ETOPOSIDE [Concomitant]
     Route: 065
     Dates: start: 20080301
  8. DEXAMETHASONE [Concomitant]
     Route: 065
     Dates: start: 20080301
  9. RITUXAN [Concomitant]
     Route: 042
     Dates: start: 20080301

REACTIONS (1)
  - STEVENS-JOHNSON SYNDROME [None]
